FAERS Safety Report 7368405-7 (Version None)
Quarter: 2011Q1

REPORT INFORMATION
  Report Type: 
  Country: None (occurrence: None)
  Receive Date: 20110317
  Receipt Date: 20110317
  Transmission Date: 20110831
  Serious: Yes (Other)
  Sender: FDA-Public Use
  Company Number: None

PATIENT
  Sex: Male
  Weight: 79.3795 kg

DRUGS (1)
  1. SIMVASTATIN [Suspect]
     Indication: BLOOD CHOLESTEROL INCREASED
     Dosage: 1 X 20MG TAB DAILY AT BEDTIME BY  MOUTH
     Route: 048
     Dates: start: 20110207, end: 20110224

REACTIONS (3)
  - AMNESIA [None]
  - CONFUSIONAL STATE [None]
  - ACTIVITIES OF DAILY LIVING IMPAIRED [None]
